FAERS Safety Report 8996623 (Version 1)
Quarter: 2013Q1

REPORT INFORMATION
  Report Type: Spontaneous
  Country: IT (occurrence: IT)
  Receive Date: 20130102
  Receipt Date: 20130102
  Transmission Date: 20140127
  Serious: Yes (Hospitalization)
  Sender: FDA-Public Use
  Company Number: IT-ASTRAZENECA-2012SE95442

PATIENT
  Age: 87 Year
  Sex: Female

DRUGS (8)
  1. ATENOLOL [Suspect]
     Indication: HYPERTENSION
     Route: 048
     Dates: start: 20121030, end: 20121030
  2. CARDIOASPIRIN [Concomitant]
  3. TARDYFER [Concomitant]
  4. PANTOPAN [Concomitant]
  5. DIAMICRON [Concomitant]
  6. VALPRESSION [Concomitant]
  7. LASIX [Concomitant]
  8. METFORMIN [Concomitant]
     Indication: DIABETES MELLITUS

REACTIONS (2)
  - Atrioventricular block complete [Unknown]
  - Presyncope [Unknown]
